FAERS Safety Report 21402262 (Version 2)
Quarter: 2023Q1

REPORT INFORMATION
  Report Type: Other
  Country: DE (occurrence: None)
  Receive Date: 20221003
  Receipt Date: 20230131
  Transmission Date: 20230417
  Serious: Yes (Other)
  Sender: FDA-Public Use
  Company Number: DE-ROCHE-3014410

PATIENT
  Sex: Female

DRUGS (16)
  1. OCREVUS [Suspect]
     Active Substance: OCRELIZUMAB
     Indication: Relapsing-remitting multiple sclerosis
     Route: 042
     Dates: start: 20220107
  2. FERROUS GLYCINE SULFATE [Suspect]
     Active Substance: FERROUS GLYCINE SULFATE
     Indication: Iron deficiency
     Dosage: MG (1-0-0),
     Route: 065
  3. MIRABEGRON [Concomitant]
     Active Substance: MIRABEGRON
  4. PREGABALIN [Concomitant]
     Active Substance: PREGABALIN
  5. PREGABALIN [Concomitant]
     Active Substance: PREGABALIN
  6. CHOLECALCIFEROL [Concomitant]
     Active Substance: CHOLECALCIFEROL
  7. CORTISONE [Concomitant]
     Active Substance: CORTISONE
     Route: 042
     Dates: start: 20220524
  8. NEUPRO [Concomitant]
     Active Substance: ROTIGOTINE
  9. DESOGESTREL [Concomitant]
     Active Substance: DESOGESTREL
  10. BACLOFEN [Concomitant]
     Active Substance: BACLOFEN
  11. GABAPENTIN [Concomitant]
     Active Substance: GABAPENTIN
  12. SPASMEX (GERMANY) [Concomitant]
  13. FOLIC ACID [Concomitant]
     Active Substance: FOLIC ACID
  14. METAMIZOLE [Concomitant]
     Active Substance: METAMIZOLE
  15. OMEPRAZOLE [Concomitant]
     Active Substance: OMEPRAZOLE
  16. NITROFURANTOIN [Concomitant]
     Active Substance: NITROFURANTOIN
     Dosage: FOR 7 DAYS

REACTIONS (12)
  - Cardiovascular disorder [Recovered/Resolved]
  - Chills [Recovered/Resolved]
  - Nausea [Recovered/Resolved]
  - Vomiting [Recovered/Resolved]
  - Urinary retention [Recovered/Resolved]
  - COVID-19 [Recovered/Resolved]
  - Iron deficiency [Recovering/Resolving]
  - Folate deficiency [Not Recovered/Not Resolved]
  - Cystitis noninfective [Recovered/Resolved]
  - Abdominal pain upper [Not Recovered/Not Resolved]
  - Headache [Recovered/Resolved]
  - Cardiovascular disorder [Recovered/Resolved]

NARRATIVE: CASE EVENT DATE: 20220107
